FAERS Safety Report 8794984 (Version 1)
Quarter: 2012Q4

REPORT INFORMATION
  Report Type: 
  Country: US (occurrence: US)
  Receive Date: 20120917
  Receipt Date: 20120917
  Transmission Date: 20130627
  Serious: Yes (Other)
  Sender: FDA-Public Use
  Company Number: US-PFIZER INC-2012228421

PATIENT
  Age: 77 Year
  Sex: Female
  Weight: 73.47 kg

DRUGS (7)
  1. NEURONTIN [Suspect]
     Indication: PAIN IN EXTREMITY
     Dosage: 800 mg, 2x/day
     Dates: start: 2009
  2. INSULIN DETEMIR [Concomitant]
     Dosage: 30 mg, daily
  3. NOVOLOG [Concomitant]
     Dosage: 55 mg, 3x/day
  4. DIOVAN (VALSARTAN) [Concomitant]
     Dosage: 160 mg, daily
  5. HYDROCHLOROTHIAZIDE [Concomitant]
     Dosage: UNK, daily
  6. CRESTOR [Concomitant]
     Indication: BLOOD CHOLESTEROL ABNORMAL
     Dosage: 20 mg, daily
  7. ACETYLSALICYLIC ACID [Concomitant]
     Dosage: 81 mg, daily

REACTIONS (2)
  - Clavicle fracture [Unknown]
  - Fall [Unknown]
